FAERS Safety Report 23173139 (Version 1)
Quarter: 2023Q4

REPORT INFORMATION
  Report Type: Spontaneous
  Country: IE (occurrence: IE)
  Receive Date: 20231111
  Receipt Date: 20231111
  Transmission Date: 20240110
  Serious: Yes (Other)
  Sender: FDA-Public Use
  Company Number: IE-TEVA-2023-IE-2944725

PATIENT
  Age: 36 Year
  Sex: Female

DRUGS (1)
  1. COPAXONE [Suspect]
     Active Substance: GLATIRAMER ACETATE
     Indication: Product used for unknown indication
     Dates: start: 2007

REACTIONS (3)
  - Lymphadenectomy [Unknown]
  - Lymphadenopathy [Unknown]
  - Lymph node pain [Unknown]

NARRATIVE: CASE EVENT DATE: 20090101
